FAERS Safety Report 8360685-4 (Version None)
Quarter: 2012Q2

REPORT INFORMATION
  Report Type: 
  Country: None (occurrence: None)
  Receive Date: 20120515
  Receipt Date: 20120503
  Transmission Date: 20120825
  Serious: Yes (Hospitalization)
  Sender: FDA-Public Use
  Company Number: US-ACTELION-A-US2012-65339

PATIENT

DRUGS (4)
  1. DIURETICS [Concomitant]
  2. DIGOXIN [Concomitant]
  3. EPOPROSTENOL SODIUM [Suspect]
     Indication: PULMONARY ARTERIAL HYPERTENSION
     Dosage: 32 NG/KG, PER MIN
     Route: 042
     Dates: start: 20120411
  4. OXYGEN [Concomitant]

REACTIONS (3)
  - PARACENTESIS [None]
  - ASCITES [None]
  - WEIGHT DECREASED [None]
